FAERS Safety Report 14893912 (Version 7)
Quarter: 2020Q2

REPORT INFORMATION
  Report Type: Spontaneous
  Country: US (occurrence: US)
  Receive Date: 20180514
  Receipt Date: 20200504
  Transmission Date: 20200713
  Serious: No
  Sender: FDA-Public Use
  Company Number: US-ACTELION-A-NJ2018-171147

PATIENT
  Age: 54 Year
  Sex: Female

DRUGS (8)
  1. ASPIRIN. [Concomitant]
     Active Substance: ASPIRIN
     Dosage: 81 MG, QD
  2. METFORMIN [Concomitant]
     Active Substance: METFORMIN HYDROCHLORIDE
     Dosage: 1000 MG, QD
  3. OPSUMIT [Suspect]
     Active Substance: MACITENTAN
     Indication: PULMONARY ARTERIAL HYPERTENSION
     Dosage: 10 MG, QD
     Route: 048
     Dates: start: 20180331
  4. LISINOPRIL. [Concomitant]
     Active Substance: LISINOPRIL
     Dosage: 5 MG, QD
  5. BACOFEN [Concomitant]
     Active Substance: BACLOFEN
     Dosage: 10 MG, QD
  6. XANAX [Concomitant]
     Active Substance: ALPRAZOLAM
     Dosage: 0.25 MG, QD
  7. FENTANYL TRANSDERMAL SYSTEM [Concomitant]
     Active Substance: FENTANYL
     Dosage: 50 MCG, EVERY THREE DAYS
     Route: 061
  8. PERCOCET [Concomitant]
     Active Substance: ACETAMINOPHEN\OXYCODONE HYDROCHLORIDE
     Dosage: 10/325 MG, QD

REACTIONS (14)
  - Decreased appetite [Unknown]
  - Weight decreased [Unknown]
  - Speech disorder [Unknown]
  - Hypotension [Not Recovered/Not Resolved]
  - Lip dry [Unknown]
  - Oedema peripheral [Recovering/Resolving]
  - Gouty arthritis [Unknown]
  - Headache [Not Recovered/Not Resolved]
  - Arthralgia [Unknown]
  - Heart rate decreased [Not Recovered/Not Resolved]
  - Urinary tract infection [Unknown]
  - Chapped lips [Unknown]
  - Thyroid mass [Unknown]
  - Myalgia [Unknown]

NARRATIVE: CASE EVENT DATE: 201804
